FAERS Safety Report 18519232 (Version 2)
Quarter: 2021Q2

REPORT INFORMATION
  Report Type: Spontaneous
  Country: US (occurrence: US)
  Receive Date: 20201118
  Receipt Date: 20210419
  Transmission Date: 20210717
  Serious: Yes (Other)
  Sender: FDA-Public Use
  Company Number: US-PFIZER INC-2019177271

PATIENT
  Age: 68 Year
  Sex: Female

DRUGS (3)
  1. NITROSTAT [Concomitant]
     Active Substance: NITROGLYCERIN
     Dosage: 0.4 MG, UNK [0.4 MG PLACE 1 TABLET UNDER TONGUE EVERY 5 MINUTES]
     Route: 060
  2. LYRICA [Suspect]
     Active Substance: PREGABALIN
     Indication: NEURALGIA
     Dosage: 75 MG, DAILY(1 IN AM, 2 IN PM TWICE A DAY)
     Route: 048
  3. LYRICA [Suspect]
     Active Substance: PREGABALIN
     Indication: POLYNEUROPATHY

REACTIONS (3)
  - Restlessness [Unknown]
  - Ankyloglossia congenital [Unknown]
  - Feeling abnormal [Unknown]
